FAERS Safety Report 7251467-5 (Version None)
Quarter: 2011Q1

REPORT INFORMATION
  Report Type: 
  Country: None (occurrence: None)
  Receive Date: 20110128
  Receipt Date: 20110121
  Transmission Date: 20110831
  Serious: Yes (Death)
  Sender: FDA-Public Use
  Company Number: IT-US-EMD SERONO, INC.-7033938

PATIENT
  Sex: Female

DRUGS (3)
  1. REBIF [Suspect]
     Route: 058
     Dates: start: 20061207, end: 20090707
  2. AMANTADINE HCL [Concomitant]
  3. REBIF [Suspect]
     Indication: MULTIPLE SCLEROSIS
     Route: 058
     Dates: start: 20060610, end: 20061207

REACTIONS (2)
  - CENTRAL NERVOUS SYSTEM LESION [None]
  - PANCREATIC CARCINOMA METASTATIC [None]
